FAERS Safety Report 4572031-2 (Version None)
Quarter: 2005Q1

REPORT INFORMATION
  Report Type: 
  Country: None (occurrence: None)
  Receive Date: 20050202
  Receipt Date: 20050202
  Transmission Date: 20050727
  Serious: Yes (Other)
  Sender: FDA-Public Use
  Company Number: None

PATIENT
  Age: 19 Year
  Sex: Female

DRUGS (1)
  1. PSEUDOEPHEDRINE   30 MG [Suspect]
     Indication: NASAL CONGESTION
     Dosage: 26 HRS PRN  SINGLE DOSE AT 0745

REACTIONS (1)
  - URTICARIA [None]
